FAERS Safety Report 6168477-1 (Version None)
Quarter: 2009Q2

REPORT INFORMATION
  Report Type: 
  Country: None (occurrence: None)
  Receive Date: 20090427
  Receipt Date: 20090421
  Transmission Date: 20091009
  Serious: Yes (Other)
  Sender: FDA-Public Use
  Company Number: A0779673A

PATIENT
  Age: 49 Year
  Sex: Female

DRUGS (7)
  1. ADVAIR HFA [Suspect]
     Indication: ASTHMA
     Dosage: 1PUFF TWICE PER DAY
     Route: 055
     Dates: start: 20070101
  2. ALBUTEROL [Concomitant]
  3. OXYCONTIN [Concomitant]
  4. ZOLOFT [Concomitant]
  5. NYSTATIN [Concomitant]
  6. VITAMINS [Concomitant]
  7. NEXIUM [Concomitant]

REACTIONS (6)
  - ASTHMA [None]
  - DRUG INEFFECTIVE [None]
  - FUNGAL INFECTION [None]
  - GASTRIC DISORDER [None]
  - GASTROOESOPHAGEAL REFLUX DISEASE [None]
  - WHEEZING [None]
